FAERS Safety Report 18206028 (Version 1)
Quarter: 2020Q3

REPORT INFORMATION
  Report Type: Spontaneous
  Country: US (occurrence: US)
  Receive Date: 20200827
  Receipt Date: 20200827
  Transmission Date: 20201103
  Serious: No
  Sender: FDA-Public Use
  Company Number: US-TEVA-2020-US-1816604

PATIENT
  Age: 71 Year
  Sex: Female

DRUGS (1)
  1. SULFASALAZINE TEVA [Suspect]
     Active Substance: SULFASALAZINE
     Indication: RHEUMATOID ARTHRITIS
     Dosage: 2 PILLS TWICE A DAY. HER DOSE WAS INCREASED TO 3 PILLS TWICE A DAY
     Route: 065
     Dates: start: 201904

REACTIONS (3)
  - Swollen tongue [Unknown]
  - Drug ineffective [Unknown]
  - Mouth ulceration [Unknown]

NARRATIVE: CASE EVENT DATE: 201904
